FAERS Safety Report 5490783-4 (Version None)
Quarter: 2007Q4

REPORT INFORMATION
  Report Type: 
  Country: None (occurrence: None)
  Receive Date: 20071019
  Receipt Date: 20071008
  Transmission Date: 20080405
  Serious: Yes (Death)
  Sender: FDA-Public Use
  Company Number: US-JNJFOC-20071004593

PATIENT
  Age: 4 Month
  Sex: Male
  Weight: 6.8 kg

DRUGS (5)
  1. ACETAMINOPHEN [Suspect]
  2. ACETAMINOPHEN [Suspect]
     Indication: DRUG USE FOR UNKNOWN INDICATION
  3. PSEUDOEPHEDRINE HCL [Suspect]
     Indication: DRUG USE FOR UNKNOWN INDICATION
  4. PHENYLPROPANOLAMINE [Suspect]
     Indication: DRUG USE FOR UNKNOWN INDICATION
  5. NORPSEUDOEPHEDRINE [Suspect]
     Indication: DRUG USE FOR UNKNOWN INDICATION

REACTIONS (4)
  - BLOOD CULTURE POSITIVE [None]
  - DRUG LEVEL INCREASED [None]
  - STAPHYLOCOCCAL INFECTION [None]
  - SUDDEN INFANT DEATH SYNDROME [None]
